FAERS Safety Report 11878410 (Version 1)
Quarter: 2015Q4

REPORT INFORMATION
  Report Type: Spontaneous
  Country: US (occurrence: None)
  Receive Date: 20151229
  Receipt Date: 20151229
  Transmission Date: 20160305
  Serious: No
  Sender: FDA-Public Use
  Company Number: None

PATIENT
  Sex: Female
  Weight: 73.48 kg

DRUGS (5)
  1. TOPAMAX [Suspect]
     Active Substance: TOPIRAMATE
     Indication: TACHYPHRENIA
     Dates: start: 20151008, end: 20151106
  2. REMERON [Concomitant]
     Active Substance: MIRTAZAPINE
  3. TOPAMAX [Suspect]
     Active Substance: TOPIRAMATE
     Indication: MOOD ALTERED
     Dates: start: 20151008, end: 20151106
  4. TOPAMAX [Suspect]
     Active Substance: TOPIRAMATE
     Indication: MIGRAINE
     Dates: start: 20151008, end: 20151106
  5. CYMBALTA [Concomitant]
     Active Substance: DULOXETINE HYDROCHLORIDE

REACTIONS (5)
  - Dizziness [None]
  - Drug dispensing error [None]
  - Visual impairment [None]
  - Incorrect dose administered [None]
  - Paraesthesia [None]

NARRATIVE: CASE EVENT DATE: 20151106
